FAERS Safety Report 26157701 (Version 1)
Quarter: 2025Q4

REPORT INFORMATION
  Report Type: Spontaneous
  Country: US (occurrence: None)
  Receive Date: 20251213
  Receipt Date: 20251213
  Transmission Date: 20260118
  Serious: Yes (Hospitalization)
  Sender: FDA-CTU
  Company Number: None

PATIENT
  Age: 50 Year
  Sex: Male
  Weight: 82.5 kg

DRUGS (3)
  1. FLUOROURACIL [Suspect]
     Active Substance: FLUOROURACIL
     Dates: end: 20251124
  2. LEUCOVORIN CALCIUM [Suspect]
     Active Substance: LEUCOVORIN CALCIUM
     Dates: end: 20251124
  3. NIVOLUMAB [Suspect]
     Active Substance: NIVOLUMAB
     Dates: end: 20251124

REACTIONS (3)
  - Dyspnoea [None]
  - Chest pain [None]
  - Middle insomnia [None]

NARRATIVE: CASE EVENT DATE: 20251210
